FAERS Safety Report 9254549 (Version 2)
Quarter: 2015Q1

REPORT INFORMATION
  Report Type: Spontaneous
  Country: US (occurrence: US)
  Receive Date: 20130425
  Receipt Date: 20150210
  Transmission Date: 20150721
  Serious: No
  Sender: FDA-Public Use
  Company Number: US-GLAXOSMITHKLINE-A1017893A

PATIENT

DRUGS (3)
  1. LUMIGAN [Concomitant]
     Active Substance: BIMATOPROST
  2. ROPINIROLE HYDROCHLORIDE TABLETS [Suspect]
     Active Substance: ROPINIROLE
     Indication: TREMOR
     Route: 048
     Dates: start: 201307
  3. HORIZANT [Suspect]
     Active Substance: GABAPENTIN ENACARBIL
     Indication: RESTLESS LEGS SYNDROME
     Route: 048
     Dates: start: 20130325

REACTIONS (10)
  - Peripheral swelling [Not Recovered/Not Resolved]
  - Off label use [Unknown]
  - Hangover [Not Recovered/Not Resolved]
  - Fatigue [Unknown]
  - Tremor [Not Recovered/Not Resolved]
  - Poor quality sleep [Not Recovered/Not Resolved]
  - Malaise [Not Recovered/Not Resolved]
  - Expired product administered [Not Recovered/Not Resolved]
  - Visual impairment [Not Recovered/Not Resolved]
  - Drug ineffective [Unknown]

NARRATIVE: CASE EVENT DATE: 20130325
